FAERS Safety Report 14152082 (Version 1)
Quarter: 2017Q4

REPORT INFORMATION
  Report Type: Spontaneous
  Country: GB (occurrence: GB)
  Receive Date: 20171102
  Receipt Date: 20171102
  Transmission Date: 20180321
  Serious: Yes (Other)
  Sender: FDA-Public Use
  Company Number: GB-MYLANLABS-2017M1067673

PATIENT
  Age: 31 Year
  Sex: Female

DRUGS (4)
  1. FENTANYL. [Suspect]
     Active Substance: FENTANYL
     Indication: PAIN
     Dosage: 2MG
     Route: 065
  2. MORPHINE [Suspect]
     Active Substance: MORPHINE
     Indication: PAIN
     Dosage: 20MG
     Route: 065
  3. MORPHINE [Suspect]
     Active Substance: MORPHINE
     Route: 042
  4. KETAMINE [Concomitant]
     Active Substance: KETAMINE
     Indication: PAIN
     Route: 042

REACTIONS (1)
  - Secondary adrenocortical insufficiency [Unknown]
